FAERS Safety Report 9500907 (Version 2)
Quarter: 2014Q1

REPORT INFORMATION
  Report Type: Report from Study
  Country: US (occurrence: US)
  Receive Date: 20130905
  Receipt Date: 20140324
  Transmission Date: 20141002
  Serious: Yes (Hospitalization, Other)
  Sender: FDA-Public Use
  Company Number: US-CELGENEUS-163-POMAL-13083906

PATIENT
  Age: 51 Year
  Sex: 0

DRUGS (3)
  1. POMALYST [Suspect]
     Indication: PLASMA CELL MYELOMA
     Dosage: 4 MILLIGRAM
     Route: 048
     Dates: start: 201303
  2. BENDAMUSTINE [Suspect]
     Indication: PLASMA CELL MYELOMA
     Route: 065
  3. DEXAMETHASONE [Suspect]
     Indication: PLASMA CELL MYELOMA
     Route: 065

REACTIONS (8)
  - Gastrointestinal disorder [Unknown]
  - Throat tightness [Unknown]
  - Candida infection [Unknown]
  - Wound [Unknown]
  - Convulsion [Unknown]
  - Gait disturbance [Unknown]
  - Respiratory arrest [Unknown]
  - Local swelling [Unknown]
